FAERS Safety Report 23262480 (Version 3)
Quarter: 2023Q4

REPORT INFORMATION
  Report Type: Spontaneous
  Country: US (occurrence: US)
  Receive Date: 20231205
  Receipt Date: 20231219
  Transmission Date: 20240109
  Serious: No
  Sender: FDA-Public Use
  Company Number: US-PFIZER INC-PV202300195985

PATIENT
  Age: 71 Year
  Sex: Female

DRUGS (4)
  1. BRAFTOVI [Suspect]
     Active Substance: ENCORAFENIB
     Dosage: TAKE FOUR CAPSULES
     Route: 048
  2. BRAFTOVI [Suspect]
     Active Substance: ENCORAFENIB
     Dosage: (TAKE 6 CAPS (450MG TOTAL) BY MOUTH DAILY)
     Route: 048
  3. MEKTOVI [Suspect]
     Active Substance: BINIMETINIB
     Dosage: THREE TABLETS
  4. MEKTOVI [Suspect]
     Active Substance: BINIMETINIB
     Dosage: (TAKE 3 TABS (45 MG TOTAL) BY MOUTH 2 (TWO))
     Route: 048

REACTIONS (1)
  - Liver function test increased [Unknown]
